FAERS Safety Report 6646090-7 (Version None)
Quarter: 2010Q1

REPORT INFORMATION
  Report Type: 
  Country: None (occurrence: None)
  Receive Date: 20100322
  Receipt Date: 20100322
  Transmission Date: 20100710
  Serious: No
  Sender: FDA-Public Use
  Company Number: None

PATIENT
  Sex: Male
  Weight: 88.4514 kg

DRUGS (1)
  1. ZICAM COLD REMEDY GEL SWAB N/A MATRIX INDUSTRIES [Suspect]
     Indication: NASOPHARYNGITIS
     Dosage: 1 SWAB TWICE DAILY NASAL
     Route: 045
     Dates: start: 20090601, end: 20090801

REACTIONS (1)
  - HYPOSMIA [None]
